FAERS Safety Report 18059497 (Version 1)
Quarter: 2020Q3

REPORT INFORMATION
  Report Type: Spontaneous
  Country: US (occurrence: US)
  Receive Date: 20200723
  Receipt Date: 20200723
  Transmission Date: 20201103
  Serious: No
  Sender: FDA-Public Use
  Company Number: US-PFIZER INC-2020279524

PATIENT
  Age: 48 Year
  Sex: Female

DRUGS (3)
  1. XEOMIN [Concomitant]
     Active Substance: INCOBOTULINUMTOXINA
     Dosage: UNK
  2. XELJANZ XR [Suspect]
     Active Substance: TOFACITINIB CITRATE
     Indication: RHEUMATOID ARTHRITIS
     Dosage: 11 MG, DAILY
     Route: 048
  3. IMURAN [Concomitant]
     Active Substance: AZATHIOPRINE
     Dosage: UNK

REACTIONS (3)
  - Drug ineffective [Unknown]
  - Contusion [Unknown]
  - Impaired healing [Unknown]
